FAERS Safety Report 4443011-2 (Version None)
Quarter: 2004Q3

REPORT INFORMATION
  Report Type: 
  Country: None (occurrence: None)
  Receive Date: 20040908
  Receipt Date: 20040901
  Transmission Date: 20050211
  Serious: Yes (Other)
  Sender: FDA-Public Use
  Company Number: PHNR2004AU01391

PATIENT
  Sex: Female

DRUGS (1)
  1. SYNTOMETRINE [Suspect]
     Indication: PAIN
     Dates: start: 20040818

REACTIONS (2)
  - CONVULSION [None]
  - MEDICATION ERROR [None]
